FAERS Safety Report 9800038 (Version 2)
Quarter: 2015Q3

REPORT INFORMATION
  Report Type: Spontaneous
  Country: US (occurrence: US)
  Receive Date: 20140106
  Receipt Date: 20150806
  Transmission Date: 20151125
  Serious: No
  Sender: FDA-Public Use
  Company Number: US-GILEAD-2010-0032111

PATIENT
  Age: 74 Year
  Sex: Female
  Weight: 52.62 kg

DRUGS (21)
  1. LIDODERM [Concomitant]
     Active Substance: LIDOCAINE
  2. MUPIROCIN. [Concomitant]
     Active Substance: MUPIROCIN
  3. LETAIRIS [Suspect]
     Active Substance: AMBRISENTAN
     Indication: PULMONARY ARTERIAL HYPERTENSION
     Route: 048
     Dates: start: 20100113
  4. BENEFIBER [Concomitant]
     Active Substance: STARCH, WHEAT
  5. DARVOCET [Concomitant]
     Active Substance: ACETAMINOPHEN\PROPOXYPHENE HYDROCHLORIDE
  6. MULTIVITAMIN [Concomitant]
     Active Substance: VITAMINS
  7. IRON [Concomitant]
     Active Substance: IRON
  8. VITRON-C PLUS [Concomitant]
  9. METOPROLOL [Concomitant]
     Active Substance: METOPROLOL
  10. COUMADIN [Concomitant]
     Active Substance: WARFARIN SODIUM
  11. ASPIRIN. [Concomitant]
     Active Substance: ASPIRIN
  12. LASIX [Concomitant]
     Active Substance: FUROSEMIDE
  13. LOPERAMIDE [Concomitant]
     Active Substance: LOPERAMIDE
  14. LEVOTHYROXINE. [Concomitant]
     Active Substance: LEVOTHYROXINE
  15. OMEGA 3 [Concomitant]
     Active Substance: OMEGA-3 FATTY ACIDS
  16. DOCUSTATE [Concomitant]
  17. AMBIEN [Concomitant]
     Active Substance: ZOLPIDEM TARTRATE
  18. VITAMIN D [Concomitant]
     Active Substance: CHOLECALCIFEROL
  19. OXYGEN. [Concomitant]
     Active Substance: OXYGEN
  20. PRILOSEC [Concomitant]
     Active Substance: OMEPRAZOLE MAGNESIUM
  21. FORTEO [Concomitant]
     Active Substance: TERIPARATIDE

REACTIONS (2)
  - Night sweats [Unknown]
  - Flushing [Unknown]
